FAERS Safety Report 10521641 (Version 1)
Quarter: 2014Q4

REPORT INFORMATION
  Report Type: Spontaneous
  Country: GB (occurrence: GB)
  Receive Date: 20141016
  Receipt Date: 20141016
  Transmission Date: 20150528
  Serious: Yes (Other)
  Sender: FDA-Public Use
  Company Number: GB-NOVOPROD-422288

PATIENT
  Age: 85 Year

DRUGS (1)
  1. NOVOMIX [Suspect]
     Active Substance: INSULIN ASPART
     Indication: DIABETES MELLITUS
     Dosage: 14 UNITS (250IU/KG) AT 18:00 HRS
     Route: 058

REACTIONS (3)
  - Blood glucose decreased [Unknown]
  - Cold sweat [Unknown]
  - Unresponsive to stimuli [Unknown]
